FAERS Safety Report 7289231-3 (Version None)
Quarter: 2011Q1

REPORT INFORMATION
  Report Type: 
  Country: None (occurrence: None)
  Receive Date: 20110201
  Receipt Date: 20110118
  Transmission Date: 20110831
  Serious: Yes (Death)
  Sender: FDA-Public Use
  Company Number: 2011P1004031

PATIENT
  Sex: Female

DRUGS (1)
  1. FENTANYL [Suspect]

REACTIONS (3)
  - TOXICITY TO VARIOUS AGENTS [None]
  - PAIN [None]
  - UNEVALUABLE EVENT [None]
